FAERS Safety Report 9240415 (Version 2)
Quarter: 2013Q2

REPORT INFORMATION
  Report Type: Spontaneous
  Country: US (occurrence: US)
  Receive Date: 20130418
  Receipt Date: 20130515
  Transmission Date: 20140414
  Serious: No
  Sender: FDA-Public Use
  Company Number: US-ASTRAZENECA-2013SE22351

PATIENT
  Sex: 0

DRUGS (2)
  1. SYMBICORT [Suspect]
     Route: 055
  2. NASONEX [Suspect]
     Route: 065

REACTIONS (1)
  - Dysgeusia [Unknown]
